FAERS Safety Report 23415517 (Version 2)
Quarter: 2025Q1

REPORT INFORMATION
  Report Type: Spontaneous
  Country: SK (occurrence: SK)
  Receive Date: 20240118
  Receipt Date: 20250212
  Transmission Date: 20250409
  Serious: Yes (Other)
  Sender: ACCORD
  Company Number: SK-EMA-DD-20231219-7482689-092839

PATIENT
  Age: 31 Year
  Sex: Male

DRUGS (13)
  1. LACOSAMIDE [Suspect]
     Active Substance: LACOSAMIDE
     Indication: Frontal lobe epilepsy
     Dosage: UNK( DOSE LOWER THAN 400MG/DAY)QD
  2. LEVETIRACETAM [Suspect]
     Active Substance: LEVETIRACETAM
     Indication: Partial seizures
     Dosage: 250 MG PER DAY
  3. CARBAMAZEPINE [Suspect]
     Active Substance: CARBAMAZEPINE
     Indication: Epilepsy
  4. PERAMPANEL [Suspect]
     Active Substance: PERAMPANEL
     Indication: Frontal lobe epilepsy
     Dosage: 2 MILLIGRAM, QD
  5. VALPROATE [Suspect]
     Active Substance: VALPROIC ACID
     Indication: Simple partial seizures
     Dosage: 1500 MILLIGRAM DAILY; TRIPLE COMBINATION
     Dates: start: 2022
  6. CENOBAMATE [Concomitant]
     Active Substance: CENOBAMATE
     Indication: Partial seizures
     Dosage: 300 MG, QD
  7. CENOBAMATE [Concomitant]
     Active Substance: CENOBAMATE
     Indication: Epilepsy
     Dosage: 250 MILLIGRAM, QD
     Dates: start: 202304
  8. LEVETIRACETAM [Suspect]
     Active Substance: LEVETIRACETAM
     Indication: Epilepsy
     Dosage: 250 MG PER DAY
  9. PERAMPANEL [Suspect]
     Active Substance: PERAMPANEL
     Indication: Partial seizures
     Dosage: 12 MG PER DAY
     Dates: start: 2022
  10. CARBAMAZEPINE [Suspect]
     Active Substance: CARBAMAZEPINE
     Indication: Simple partial seizures
  11. VALPROATE [Suspect]
     Active Substance: VALPROIC ACID
     Indication: Focal dyscognitive seizures
     Dosage: 1500 MILLIGRAM DAILY; TRIPLE COMBINATION
     Dates: start: 2022
  12. LACOSAMIDE [Suspect]
     Active Substance: LACOSAMIDE
     Indication: Frontal lobe epilepsy
     Dosage: 400 MILLIGRAM, QD
  13. LACOSAMIDE [Suspect]
     Active Substance: LACOSAMIDE
     Indication: Focal dyscognitive seizures
     Dosage: 400 MILLIGRAM DAILY; TRIPLE COMBINATION

REACTIONS (4)
  - Psychomotor skills impaired [Recovered/Resolved]
  - Dysarthria [Recovered/Resolved]
  - Multiple-drug resistance [Unknown]
  - Weight increased [Recovered/Resolved]
